FAERS Safety Report 17204820 (Version 1)
Quarter: 2019Q4

REPORT INFORMATION
  Report Type: Report from Study
  Country: None (occurrence: US)
  Receive Date: 20191226
  Receipt Date: 20191226
  Transmission Date: 20200122
  Serious: Yes (Other)
  Sender: FDA-Public Use
  Company Number: US-ABBVIE-19K-163-3208261-00

PATIENT
  Sex: Female

DRUGS (2)
  1. PREDNISONE. [Concomitant]
     Active Substance: PREDNISONE
     Indication: PRODUCT USED FOR UNKNOWN INDICATION
     Dosage: WANED OFF
  2. HUMIRA [Suspect]
     Active Substance: ADALIMUMAB
     Indication: PSORIASIS
     Route: 058
     Dates: start: 20190920, end: 2019

REACTIONS (3)
  - Cushing^s syndrome [Not Recovered/Not Resolved]
  - Systemic lupus erythematosus [Recovered/Resolved]
  - Muscular weakness [Unknown]

NARRATIVE: CASE EVENT DATE: 2019
